FAERS Safety Report 4536216-3 (Version None)
Quarter: 2004Q4

REPORT INFORMATION
  Report Type: 
  Country: None (occurrence: None)
  Receive Date: 20041223
  Receipt Date: 20041217
  Transmission Date: 20050328
  Serious: Yes (Hospitalization)
  Sender: FDA-Public Use
  Company Number: FR-GLAXOSMITHKLINE-B0362377A

PATIENT
  Age: 68 Year
  Sex: Male
  Weight: 70 kg

DRUGS (5)
  1. AUGMENTIN '125' [Suspect]
     Indication: PAROTITIS
     Dosage: 1G THREE TIMES PER DAY
     Route: 042
     Dates: start: 20041110, end: 20041111
  2. AUGMENTIN '125' [Suspect]
     Indication: PAROTITIS
     Dosage: 1G THREE TIMES PER DAY
     Route: 048
     Dates: start: 20041111, end: 20041112
  3. LODALES [Concomitant]
     Indication: HYPERCHOLESTEROLAEMIA
     Route: 048
  4. ACETAMINOPHEN [Concomitant]
     Dosage: 3G PER DAY
     Route: 042
     Dates: start: 20041110, end: 20041111
  5. DAFALGAN [Concomitant]
     Dosage: 1000MG PER DAY
     Route: 048
     Dates: start: 20041111

REACTIONS (4)
  - ERYTHEMA [None]
  - LEUKOCYTOSIS [None]
  - LYMPHOPENIA [None]
  - OEDEMA [None]
